FAERS Safety Report 7109669-4 (Version None)
Quarter: 2010Q4

REPORT INFORMATION
  Report Type: 
  Country: None (occurrence: None)
  Receive Date: 20101115
  Receipt Date: 20101115
  Transmission Date: 20110411
  Serious: Yes (Other)
  Sender: FDA-Public Use
  Company Number: None

PATIENT
  Sex: Female
  Weight: 80.2867 kg

DRUGS (1)
  1. ABILIFY [Suspect]
     Indication: BIPOLAR I DISORDER
     Dosage: 45MG ONCE DAILY AM ORAL TABLET
     Route: 048
     Dates: start: 20070124, end: 20100916

REACTIONS (5)
  - GRANDIOSITY [None]
  - MANIA [None]
  - SPEECH DISORDER [None]
  - TACHYPHRENIA [None]
  - TARDIVE DYSKINESIA [None]
